FAERS Safety Report 22027329 (Version 1)
Quarter: 2023Q1

REPORT INFORMATION
  Report Type: Spontaneous
  Country: US (occurrence: None)
  Receive Date: 20230223
  Receipt Date: 20230223
  Transmission Date: 20230418
  Serious: No
  Sender: FDA-Public Use
  Company Number: US-ROCHE-3233554

PATIENT
  Sex: Female

DRUGS (1)
  1. XOLAIR [Suspect]
     Active Substance: OMALIZUMAB
     Indication: Product used for unknown indication
     Route: 058
     Dates: start: 202211

REACTIONS (6)
  - Irritability [Unknown]
  - Vertigo [Unknown]
  - Abdominal pain [Unknown]
  - Headache [Unknown]
  - Agitation [Unknown]
  - Dizziness [Unknown]

NARRATIVE: CASE EVENT DATE: 20221128
